FAERS Safety Report 17229587 (Version 1)
Quarter: 2019Q4

REPORT INFORMATION
  Report Type: Spontaneous
  Country: US (occurrence: US)
  Receive Date: 20191210
  Receipt Date: 20191210
  Transmission Date: 20200122
  Serious: Yes (Hospitalization)
  Sender: FDA-Public Use
  Company Number: None

PATIENT
  Age: 71 Year
  Sex: Male
  Weight: 87.95 kg

DRUGS (1)
  1. AZATHIOPRINE (AZATHIOPRINE 50MG TAB) [Suspect]
     Active Substance: AZATHIOPRINE
     Indication: PAIN
     Route: 048
     Dates: start: 20180320, end: 20180413

REACTIONS (6)
  - Hypertension [None]
  - Abdominal pain [None]
  - Benign prostatic hyperplasia [None]
  - Barrett^s oesophagus [None]
  - Dyspnoea [None]
  - Pyrexia [None]

NARRATIVE: CASE EVENT DATE: 20180416
